FAERS Safety Report 7659591-X (Version None)
Quarter: 2011Q3

REPORT INFORMATION
  Report Type: 
  Country: None (occurrence: None)
  Receive Date: 20110805
  Receipt Date: 20110802
  Transmission Date: 20111222
  Serious: Yes (Other)
  Sender: FDA-Public Use
  Company Number: IT-PFIZER INC-2011176680

PATIENT
  Age: 39 Year
  Sex: Male

DRUGS (1)
  1. VIAGRA [Suspect]
     Dosage: 1/8 OF A 100 MG TABLET , EVERY 2 DAYS
     Dates: end: 20110101

REACTIONS (2)
  - SCIATICA [None]
  - TINNITUS [None]
